FAERS Safety Report 6457116-8 (Version None)
Quarter: 2009Q4

REPORT INFORMATION
  Report Type: 
  Country: None (occurrence: None)
  Receive Date: 20091125
  Receipt Date: 20091118
  Transmission Date: 20100525
  Serious: Yes (Hospitalization)
  Sender: FDA-Public Use
  Company Number: B0602568A

PATIENT
  Age: 5 Year
  Sex: Male

DRUGS (1)
  1. AUGMENTIN [Suspect]
     Indication: PROPHYLAXIS
     Dosage: 120ML UNKNOWN
     Route: 048
     Dates: start: 20091028, end: 20091028

REACTIONS (2)
  - ERYTHEMA [None]
  - LIP OEDEMA [None]
